FAERS Safety Report 21140347 (Version 2)
Quarter: 2022Q3

REPORT INFORMATION
  Report Type: Spontaneous
  Country: BR (occurrence: BR)
  Receive Date: 20220728
  Receipt Date: 20220805
  Transmission Date: 20221027
  Serious: Yes (Hospitalization, Other)
  Sender: FDA-Public Use
  Company Number: BR-NOVOPROD-940197

PATIENT
  Age: 65 Year
  Sex: Male
  Weight: 110 kg

DRUGS (9)
  1. SAXENDA [Suspect]
     Active Substance: LIRAGLUTIDE
     Dosage: 2.4 MG, QD
  2. SAXENDA [Suspect]
     Active Substance: LIRAGLUTIDE
     Dosage: 3 MG, QD
     Dates: start: 20220406
  3. SAXENDA [Suspect]
     Active Substance: LIRAGLUTIDE
     Indication: Obesity
     Dosage: 0.6 MG, QD (MORNING)
     Dates: start: 20211214
  4. TRIMETAZIDINE [Concomitant]
     Active Substance: TRIMETAZIDINE
     Indication: Product used for unknown indication
     Dosage: 35 MG, BID
  5. RIVAROXABAN [Concomitant]
     Active Substance: RIVAROXABAN
     Indication: Product used for unknown indication
     Dosage: 20 MG, QD
  6. METOPROLOL [Concomitant]
     Active Substance: METOPROLOL
     Indication: Product used for unknown indication
     Dosage: 100 MG, QD
  7. RAMIPRIL [Concomitant]
     Active Substance: RAMIPRIL
     Indication: Product used for unknown indication
     Dosage: 5 MG, QD
  8. ORLIPID [Concomitant]
     Indication: Product used for unknown indication
     Dosage: 120 MG, QD
  9. ROSUVASTATIN [Concomitant]
     Active Substance: ROSUVASTATIN
     Indication: Product used for unknown indication
     Dosage: 20 MG, QD

REACTIONS (2)
  - Peripheral ischaemia [Recovered/Resolved]
  - Nausea [Recovered/Resolved]

NARRATIVE: CASE EVENT DATE: 20220209
